FAERS Safety Report 10069133 (Version 3)
Quarter: 2014Q2

REPORT INFORMATION
  Report Type: Spontaneous
  Country: GB (occurrence: GB)
  Receive Date: 20140409
  Receipt Date: 20140605
  Transmission Date: 20141212
  Serious: Yes (Death, Other)
  Sender: FDA-Public Use
  Company Number: GB-MYLANLABS-2014S1007273

PATIENT
  Sex: Female

DRUGS (5)
  1. METFORMIN [Suspect]
     Indication: DIABETES MELLITUS
  2. IBUPROFEN [Suspect]
     Indication: PRODUCT USED FOR UNKNOWN INDICATION
  3. ELIQUIS [Suspect]
     Indication: HIP ARTHROPLASTY
  4. NAPROXEN [Concomitant]
     Indication: PRODUCT USED FOR UNKNOWN INDICATION
  5. RAMIPRIL [Concomitant]
     Indication: PRODUCT USED FOR UNKNOWN INDICATION

REACTIONS (5)
  - Renal failure [Unknown]
  - Drug interaction [Unknown]
  - Death [Fatal]
  - Infection [Unknown]
  - Blood pressure decreased [Unknown]
